FAERS Safety Report 8909247 (Version 1)
Quarter: 2012Q4

REPORT INFORMATION
  Report Type: Spontaneous
  Country: DK (occurrence: None)
  Receive Date: 20121106
  Receipt Date: 20121106
  Transmission Date: 20130627
  Serious: Yes (Hospitalization, Other)
  Sender: FDA-Public Use
  Company Number: 2012MA012775

PATIENT
  Age: 89 Year
  Sex: Female

DRUGS (5)
  1. DONEPEZIL HYDROCHLORIDE [Suspect]
     Indication: DEMENTIA
     Route: 048
     Dates: start: 201201, end: 20120820
  2. ATENOLOL [Concomitant]
  3. ACETYLSALICYLIC ACID [Concomitant]
  4. FUROSEMIDE [Concomitant]
  5. SIMVASTATIN [Concomitant]

REACTIONS (3)
  - Sinus bradycardia [None]
  - Fall [None]
  - Atrioventricular block first degree [None]
